FAERS Safety Report 19032682 (Version 2)
Quarter: 2021Q2

REPORT INFORMATION
  Report Type: Report from Study
  Country: CO (occurrence: CO)
  Receive Date: 20210319
  Receipt Date: 20210612
  Transmission Date: 20210717
  Serious: No
  Sender: FDA-Public Use
  Company Number: CO-TAKEDA-CO202012029

PATIENT
  Age: 57 Year
  Sex: Female
  Weight: 65 kg

DRUGS (4)
  1. ICATIBANT [Suspect]
     Active Substance: ICATIBANT ACETATE
     Indication: HEREDITARY ANGIOEDEMA
     Dosage: 30 MILLIGRAM, 1 EVERY 6 HOURS IF THE EPISODE PERSISTS
     Route: 058
     Dates: start: 20150911
  2. ICATIBANT [Suspect]
     Active Substance: ICATIBANT ACETATE
     Dosage: 30 MILLIGRAM, 1 EVERY 6 HOURS IF THE EPISODE PERSISTS
     Route: 058
     Dates: start: 20150911
  3. ICATIBANT [Suspect]
     Active Substance: ICATIBANT ACETATE
     Dosage: 30 MILLIGRAM, 1 EVERY 6 HOURS IF THE EPISODE PERSISTS
     Route: 058
     Dates: start: 20150911
  4. ICATIBANT [Suspect]
     Active Substance: ICATIBANT ACETATE
     Indication: HEREDITARY ANGIOEDEMA
     Dosage: 30 MILLIGRAM, 1 EVERY 6 HOURS IF THE EPISODE PERSISTS
     Route: 058
     Dates: start: 20150911

REACTIONS (2)
  - Dysphagia [Recovered/Resolved]
  - Headache [Recovered/Resolved]

NARRATIVE: CASE EVENT DATE: 20210315
